FAERS Safety Report 23472237 (Version 2)
Quarter: 2024Q2

REPORT INFORMATION
  Report Type: Spontaneous
  Country: US (occurrence: US)
  Receive Date: 20240202
  Receipt Date: 20240409
  Transmission Date: 20240716
  Serious: No
  Sender: FDA-Public Use
  Company Number: US-Calliditas-2024CAL00113

PATIENT
  Age: 68 Year
  Sex: Male

DRUGS (1)
  1. TARPEYO [Suspect]
     Active Substance: BUDESONIDE
     Indication: IgA nephropathy
     Dosage: 16MG (4MG CAPSULES) ONCE DAILY
     Route: 048
     Dates: start: 20230503

REACTIONS (7)
  - Asthenia [Unknown]
  - Muscular weakness [Unknown]
  - Muscle atrophy [Unknown]
  - Gastrointestinal disorder [Unknown]
  - Cushingoid [Unknown]
  - Arthralgia [Unknown]
  - Arthralgia [Unknown]
